FAERS Safety Report 4436042-X (Version None)
Quarter: 2004Q3

REPORT INFORMATION
  Report Type: 
  Country: None (occurrence: None)
  Receive Date: 20040726
  Receipt Date: 20040427
  Transmission Date: 20050211
  Serious: No
  Sender: FDA-Public Use
  Company Number: USA040465203

PATIENT
  Age: 81 Year
  Sex: Male
  Weight: 73 kg

DRUGS (4)
  1. FORTEO [Suspect]
     Indication: OSTEOPOROSIS
     Dosage: 20 UG/1 DAY
     Dates: start: 20040412
  2. LISINOPRIL [Concomitant]
  3. PREVACID [Concomitant]
  4. FLOMAX MR (TAMSULOSIN HYDROCHLORIDE) [Concomitant]

REACTIONS (4)
  - APATHY [None]
  - ASTHENIA [None]
  - DIZZINESS [None]
  - INITIAL INSOMNIA [None]
